FAERS Safety Report 7357701-5 (Version None)
Quarter: 2011Q1

REPORT INFORMATION
  Report Type: 
  Country: None (occurrence: None)
  Receive Date: 20110314
  Receipt Date: 20110314
  Transmission Date: 20110831
  Serious: Yes (Life-Threatening, Hospitalization)
  Sender: FDA-Public Use
  Company Number: None

PATIENT
  Sex: Female
  Weight: 72.7 kg

DRUGS (1)
  1. ALDENTRONATE [Suspect]
     Indication: OSTEOPOROSIS
     Dosage: FOSAMAX WEEKLY ORAL
     Route: 048
     Dates: start: 20090101

REACTIONS (5)
  - DYSPNOEA [None]
  - PRODUCT LABEL ISSUE [None]
  - WHEEZING [None]
  - PRODUCTIVE COUGH [None]
  - FOREIGN BODY ASPIRATION [None]
